FAERS Safety Report 10027200 (Version 2)
Quarter: 2014Q2

REPORT INFORMATION
  Report Type: Spontaneous
  Country: FR (occurrence: FR)
  Receive Date: 20140321
  Receipt Date: 20140409
  Transmission Date: 20141212
  Serious: Yes (Other)
  Sender: FDA-Public Use
  Company Number: FR-JNJFOC-20140309810

PATIENT
  Age: 29 Year
  Sex: Male
  Weight: 75 kg

DRUGS (3)
  1. REMICADE [Suspect]
     Indication: ANKYLOSING SPONDYLITIS
     Dosage: ELEVENTH INFUSION, 490 MG EVERY 8 WEEKS
     Route: 042
     Dates: start: 20140220
  2. REMICADE [Suspect]
     Indication: ANKYLOSING SPONDYLITIS
     Dosage: ELEVENTH INFUSION, 490 MG EVERY 8 WEEKS
     Route: 042
  3. REMICADE [Suspect]
     Indication: ANKYLOSING SPONDYLITIS
     Dosage: ELEVENTH INFUSION, 490 MG EVERY 8 WEEKS
     Route: 042
     Dates: start: 20140102

REACTIONS (1)
  - Alveolitis [Unknown]
